FAERS Safety Report 4525218-9 (Version None)
Quarter: 2004Q4

REPORT INFORMATION
  Report Type: 
  Country: None (occurrence: None)
  Receive Date: 20041213
  Receipt Date: 20040407
  Transmission Date: 20050328
  Serious: Yes (Hospitalization, Other)
  Sender: FDA-Public Use
  Company Number: US-BRISTOL-MYERS SQUIBB COMPANY-12553376

PATIENT
  Age: 66 Year
  Sex: Female

DRUGS (15)
  1. CARBOPLATIN [Suspect]
     Indication: OVARIAN CANCER
     Dosage: THERAPY DATES: 18-MAR-2004
     Route: 042
     Dates: start: 20040318, end: 20040318
  2. PACLITAXEL [Suspect]
     Indication: OVARIAN CANCER
     Dosage: THERAPY DATES: 18-MAR-2004
     Route: 042
     Dates: start: 20040318, end: 20040318
  3. INTERFERON GAMMA [Suspect]
     Indication: OVARIAN CANCER
     Dosage: THERAPY DATES: 18-MAR-2004
     Route: 058
     Dates: start: 20040320, end: 20040320
  4. PROTONIX [Concomitant]
     Dates: start: 19860101
  5. BUSPAR [Concomitant]
     Dates: start: 20020501
  6. COLESTID [Concomitant]
     Dates: start: 20040310
  7. EFFEXOR [Concomitant]
  8. NORVASC [Concomitant]
     Dates: start: 20020501
  9. SYNTHROID [Concomitant]
     Dates: start: 19920101
  10. COMPAZINE [Concomitant]
     Dates: start: 20040309
  11. HUMIBID DM [Concomitant]
  12. PERCOCET [Concomitant]
  13. ZOFRAN [Concomitant]
  14. MOTRIN [Concomitant]
  15. LOMOTIL [Concomitant]
     Dates: start: 20040309

REACTIONS (3)
  - DEHYDRATION [None]
  - NEUTROPENIA [None]
  - NEUTROPENIC COLITIS [None]
